FAERS Safety Report 15082774 (Version 1)
Quarter: 2018Q2

REPORT INFORMATION
  Report Type: Spontaneous
  Country: FR (occurrence: FR)
  Receive Date: 20180628
  Receipt Date: 20180628
  Transmission Date: 20180711
  Serious: Yes (Other)
  Sender: FDA-Public Use
  Company Number: FR-IMPAX LABORATORIES, INC-2018-IPXL-02196

PATIENT

DRUGS (2)
  1. URSODIOL. [Suspect]
     Active Substance: URSODIOL
     Indication: PRIMARY BILIARY CHOLANGITIS
     Dosage: UNK
     Route: 065
  2. BEZAFIBRATE [Suspect]
     Active Substance: BEZAFIBRATE
     Indication: PRIMARY BILIARY CHOLANGITIS
     Dosage: 400 MG, DAILY
     Route: 065

REACTIONS (2)
  - Chronic hepatic failure [Unknown]
  - Drug effect incomplete [Unknown]
